FAERS Safety Report 16782466 (Version 1)
Quarter: 2019Q3

REPORT INFORMATION
  Report Type: Spontaneous
  Country: US (occurrence: US)
  Receive Date: 20190906
  Receipt Date: 20190906
  Transmission Date: 20191007
  Serious: Yes (Hospitalization)
  Sender: FDA-Public Use
  Company Number: None

PATIENT
  Age: 53 Year
  Sex: Female

DRUGS (20)
  1. CALCIFEROL DRO 8000/ML [Concomitant]
  2. FUROSEMIDE INJ 10 MG/ML [Concomitant]
  3. BACLOFEN TAB 10 MG [Concomitant]
  4. NEURONTIN TAB 800 MG [Concomitant]
  5. SENNA SYP [Concomitant]
  6. CYMBALTA CAP 20 MG [Concomitant]
  7. CLONAZEPAM TAB 0.5 MG [Concomitant]
  8. ZOLPIDEM TAB 5 MG [Concomitant]
  9. OXYCODONE SOL 5 MG / 5 ML [Concomitant]
  10. TOPROL XL TAB 25 MG [Concomitant]
  11. SYNTHROID TAB 50 MCG [Concomitant]
  12. OMEPRAZOLE TAB 20 MG [Concomitant]
  13. CELEBREX CAP 50 MG [Concomitant]
  14. ACTEMRA [Suspect]
     Active Substance: TOCILIZUMAB
     Indication: RHEUMATOID ARTHRITIS
     Dosage: ?          OTHER FREQUENCY:EVERY WEEK;?
     Route: 058
     Dates: start: 20170113
  15. KCL/D5W/NACL INJ .22/.45 [Concomitant]
  16. MULTI VITAMIN TAB [Concomitant]
  17. MORPHINE SUL TAB 15 MG [Concomitant]
  18. FERROUS SULF SYP 300/5 ML [Concomitant]
  19. AZATHIOPRINE TAB 50 MG [Concomitant]
  20. ABILIFY MAIN INJ 300 MG [Concomitant]

REACTIONS (2)
  - Product dose omission [None]
  - Postoperative wound infection [None]

NARRATIVE: CASE EVENT DATE: 20190804
